FAERS Safety Report 6636443-5 (Version None)
Quarter: 2010Q1

REPORT INFORMATION
  Report Type: 
  Country: None (occurrence: None)
  Receive Date: 20100316
  Receipt Date: 20100308
  Transmission Date: 20100710
  Serious: Yes (Hospitalization)
  Sender: FDA-Public Use
  Company Number: B0638058A

PATIENT
  Age: 54 Year
  Sex: Male

DRUGS (13)
  1. CLINDAMYCIN [Suspect]
     Indication: CELLULITIS
     Route: 048
     Dates: start: 20090821, end: 20090825
  2. CHLORHEXIDINE GLUCONATE [Suspect]
     Route: 061
  3. HYDROMOL CREAM [Suspect]
     Indication: DRY SKIN
     Route: 061
  4. FLOXACILLIN SODIUM [Concomitant]
     Indication: CELLULITIS
     Route: 048
     Dates: start: 20090821, end: 20090828
  5. SIMVASTATIN [Concomitant]
     Route: 048
  6. LANSOPRAZOLE [Concomitant]
     Route: 048
  7. IRBESARTAN [Concomitant]
     Route: 048
  8. DOXAZOSIN [Concomitant]
  9. PARACETAMOL [Concomitant]
     Dosage: 4G PER DAY
  10. AMLODIPINE [Concomitant]
  11. METFORMIN HYDROCHLORIDE [Concomitant]
  12. CLOPIDOGREL [Concomitant]
  13. NOVOMIX [Concomitant]
     Route: 058

REACTIONS (6)
  - CHILLS [None]
  - DERMATITIS EXFOLIATIVE [None]
  - ERYTHEMA [None]
  - SKIN EXFOLIATION [None]
  - SKIN FISSURES [None]
  - TACHYCARDIA [None]
